FAERS Safety Report 26042846 (Version 1)
Quarter: 2025Q4

REPORT INFORMATION
  Report Type: Spontaneous
  Country: US (occurrence: US)
  Receive Date: 20251113
  Receipt Date: 20251113
  Transmission Date: 20260118
  Serious: Yes (Hospitalization, Other)
  Sender: GALDERMA
  Company Number: US-GALDERMA-US2025023162

PATIENT

DRUGS (2)
  1. NEMLUVIO [Suspect]
     Active Substance: NEMOLIZUMAB-ILTO
     Indication: Neurodermatitis
     Dosage: 60 MILLIGRAM, EVERY 4 WEEKS
     Route: 058
     Dates: start: 20251001, end: 20251001
  2. NEMLUVIO [Suspect]
     Active Substance: NEMOLIZUMAB-ILTO
     Dosage: UNK
     Route: 058
     Dates: start: 20251101

REACTIONS (4)
  - Influenza [Unknown]
  - Pneumonia [Unknown]
  - Pruritus [Unknown]
  - Rash [Unknown]

NARRATIVE: CASE EVENT DATE: 20250101
